FAERS Safety Report 6021094-6 (Version None)
Quarter: 2008Q4

REPORT INFORMATION
  Report Type: 
  Country: None (occurrence: None)
  Receive Date: 20081229
  Receipt Date: 20081215
  Transmission Date: 20090506
  Serious: Yes (Other)
  Sender: FDA-Public Use
  Company Number: BR-PFIZER INC-2008067350

PATIENT

DRUGS (3)
  1. GEODON [Suspect]
     Indication: BIPOLAR DISORDER
     Dosage: 80 MG, 1X/DAY
     Route: 048
     Dates: start: 20070101
  2. CARBOLITIUM [Concomitant]
     Route: 048
  3. LEVOTHYROXINE [Concomitant]
     Route: 048
     Dates: start: 20080807

REACTIONS (3)
  - ASTHENIA [None]
  - BRADYPHRENIA [None]
  - SOMNOLENCE [None]
